FAERS Safety Report 21173702 (Version 1)
Quarter: 2022Q3

REPORT INFORMATION
  Report Type: Spontaneous
  Country: US (occurrence: US)
  Receive Date: 20220804
  Receipt Date: 20220804
  Transmission Date: 20221026
  Serious: No
  Sender: FDA-Public Use
  Company Number: US-PERRIGO-21US028245

PATIENT
  Age: 42 Year
  Sex: Female
  Weight: 72.562 kg

DRUGS (3)
  1. LORATADINE [Suspect]
     Active Substance: LORATADINE
     Indication: Off label use
     Dosage: 20 MG, SINGLE
     Route: 048
     Dates: start: 20210916, end: 20210916
  2. SYNTHROID [Concomitant]
     Active Substance: LEVOTHYROXINE SODIUM
     Indication: Hypothyroidism
     Dosage: UNK
     Route: 065
  3. CEPHALEXIN                         /00145501/ [Concomitant]
     Indication: Arthropod sting
     Dosage: UNK
     Route: 065
     Dates: start: 20210916

REACTIONS (1)
  - Off label use [Recovered/Resolved]

NARRATIVE: CASE EVENT DATE: 20210916
